FAERS Safety Report 4899967-7 (Version None)
Quarter: 2006Q1

REPORT INFORMATION
  Report Type: 
  Country: None (occurrence: None)
  Receive Date: 20060131
  Receipt Date: 20060119
  Transmission Date: 20060701
  Serious: Yes (Hospitalization, Other)
  Sender: FDA-Public Use
  Company Number: 2005068265

PATIENT
  Age: 50 Year
  Sex: Female
  Weight: 125.6464 kg

DRUGS (1)
  1. CELEBREX [Suspect]
     Indication: PAIN
     Dates: start: 20011026, end: 20041201

REACTIONS (9)
  - CARDIAC FAILURE CONGESTIVE [None]
  - CONGESTIVE CARDIOMYOPATHY [None]
  - CORONARY ARTERY OCCLUSION [None]
  - EMOTIONAL DISTRESS [None]
  - INJURY [None]
  - MYOCARDIAL ISCHAEMIA [None]
  - PAIN [None]
  - STENT PLACEMENT [None]
  - VENTRICULAR DYSFUNCTION [None]
